FAERS Safety Report 9964855 (Version 1)
Quarter: 2014Q1

REPORT INFORMATION
  Report Type: Spontaneous
  Country: US (occurrence: US)
  Receive Date: 20140305
  Receipt Date: 20140305
  Transmission Date: 20141002
  Serious: No
  Sender: FDA-Public Use
  Company Number: US-AMGEN-USASP2014002067

PATIENT
  Age: 42 Year
  Sex: Male
  Weight: 117.91 kg

DRUGS (2)
  1. ENBREL [Suspect]
     Indication: PSORIATIC ARTHROPATHY
     Dosage: 50 MG, QWK
     Route: 058
     Dates: start: 201305
  2. ENBREL [Suspect]
     Indication: PSORIASIS

REACTIONS (2)
  - Drug effect incomplete [Unknown]
  - Psoriasis [Unknown]
